FAERS Safety Report 16855405 (Version 1)
Quarter: 2019Q3

REPORT INFORMATION
  Report Type: Spontaneous
  Country: SI (occurrence: SI)
  Receive Date: 20190926
  Receipt Date: 20190926
  Transmission Date: 20191005
  Serious: Yes (Other)
  Sender: FDA-Public Use
  Company Number: PHHY2019SI220250

PATIENT
  Age: 75 Year
  Sex: Male

DRUGS (1)
  1. PAZOPANIB [Suspect]
     Active Substance: PAZOPANIB
     Indication: RENAL CELL CARCINOMA
     Dosage: 800 MG, QD
     Route: 065
     Dates: start: 20150907, end: 20171117

REACTIONS (11)
  - Oedema peripheral [Unknown]
  - Blood pressure abnormal [Not Recovered/Not Resolved]
  - Liver function test abnormal [Unknown]
  - Peripheral swelling [Unknown]
  - Weight increased [Unknown]
  - Decreased appetite [Unknown]
  - Nephrotic syndrome [Unknown]
  - Ascites [Unknown]
  - Abdominal distension [Unknown]
  - Renal impairment [Unknown]
  - Fatigue [Unknown]
